FAERS Safety Report 9702276 (Version 1)
Quarter: 2013Q4

REPORT INFORMATION
  Report Type: Spontaneous
  Country: NL (occurrence: NL)
  Receive Date: 20131121
  Receipt Date: 20131121
  Transmission Date: 20140711
  Serious: Yes (Other)
  Sender: FDA-Public Use
  Company Number: NL-ABBVIE-13P-114-1171269-00

PATIENT
  Age: 13 Year
  Sex: Male
  Weight: 54 kg

DRUGS (4)
  1. HUMIRA [Suspect]
     Indication: CROHN^S DISEASE
     Route: 030
     Dates: start: 20120326
  2. HUMIRA [Suspect]
     Dosage: DOSE DECREASED
     Route: 030
  3. PURINETHOL [Concomitant]
     Indication: PRODUCT USED FOR UNKNOWN INDICATION
     Route: 048
     Dates: start: 2012
  4. MERCAPTOPURINE [Concomitant]
     Indication: PRODUCT USED FOR UNKNOWN INDICATION

REACTIONS (6)
  - Visual acuity reduced [Not Recovered/Not Resolved]
  - Dermatitis [Not Recovered/Not Resolved]
  - Ocular hyperaemia [Recovered/Resolved]
  - Subcutaneous abscess [Not Recovered/Not Resolved]
  - Cyanosis [Recovered/Resolved]
  - Oral mucosal discolouration [Recovered/Resolved]
